FAERS Safety Report 9925075 (Version 2)
Quarter: 2014Q1

REPORT INFORMATION
  Report Type: Spontaneous
  Country: IT (occurrence: IT)
  Receive Date: 20140226
  Receipt Date: 20140226
  Transmission Date: 20141002
  Serious: Yes (Other)
  Sender: FDA-Public Use
  Company Number: IT-MERCK-1402ITA006928

PATIENT
  Age: 71 Year
  Sex: Male

DRUGS (3)
  1. FINASTERIDE [Suspect]
     Indication: DRUG ABUSE
     Dosage: 15 POSOLOGICAL UNITS TOTAL DAILY DOSE
     Route: 048
     Dates: start: 20131221, end: 20131221
  2. SAMYR [Suspect]
     Indication: DRUG ABUSE
     Dosage: 20 POSOLOGICAL UNITS TOTAL DAILY DOSE
     Route: 048
     Dates: start: 20131221, end: 20131221
  3. METFORMIN [Suspect]
     Indication: DRUG ABUSE
     Dosage: 2000 MG TOTAL DAILY DOSE
     Route: 048
     Dates: start: 20131221, end: 20131221

REACTIONS (2)
  - Agitation [Recovering/Resolving]
  - Drug abuse [Recovering/Resolving]
